FAERS Safety Report 6542418-7 (Version None)
Quarter: 2010Q1

REPORT INFORMATION
  Report Type: 
  Country: None (occurrence: None)
  Receive Date: 20100114
  Receipt Date: 20100114
  Transmission Date: 20100710
  Serious: No
  Sender: FDA-Public Use
  Company Number: None

PATIENT
  Age: 48 Year
  Sex: Female
  Weight: 58.9676 kg

DRUGS (2)
  1. ZICAM COLD REMEDY GEL NOT ON BOX OR INSERT ZICAM [Suspect]
     Indication: NASAL CONGESTION
     Dosage: PUMP ONCE INTO EACH NOSTRIL 3 HOURS NASAL 3 TIMES ONLY
     Route: 045
     Dates: start: 20090418, end: 20090420
  2. ZICAM EXTREME CONGESTION GEL NOT ON BOX OR INSERT ZICAM [Suspect]
     Indication: NASAL CONGESTION
     Dosage: PUMP 2-3 TIMES IN EACH NOSTRIL 10-12 HOURS NASAL 2 TIMES ONLY
     Route: 045
     Dates: start: 20090421, end: 20090426

REACTIONS (4)
  - AGEUSIA [None]
  - ANOSMIA [None]
  - BURNING SENSATION [None]
  - DRUG INEFFECTIVE [None]
